FAERS Safety Report 19654271 (Version 1)
Quarter: 2021Q3

REPORT INFORMATION
  Report Type: Spontaneous
  Country: GR (occurrence: GR)
  Receive Date: 20210803
  Receipt Date: 20210803
  Transmission Date: 20211014
  Serious: Yes (Other)
  Sender: FDA-Public Use
  Company Number: NVSC2021GR167462

PATIENT
  Age: 80 Year
  Sex: Female

DRUGS (1)
  1. LOPRESOR [Suspect]
     Active Substance: METOPROLOL
     Indication: VENTRICULAR EXTRASYSTOLES
     Dosage: UNK (? DOSAGE FORM)
     Route: 065

REACTIONS (11)
  - Seizure [Not Recovered/Not Resolved]
  - Bone pain [Not Recovered/Not Resolved]
  - Pruritus [Not Recovered/Not Resolved]
  - Intentional product misuse [Not Recovered/Not Resolved]
  - Dry mouth [Not Recovered/Not Resolved]
  - Swelling [Not Recovered/Not Resolved]
  - Underdose [Not Recovered/Not Resolved]
  - Solar dermatitis [Not Recovered/Not Resolved]
  - Dyspepsia [Not Recovered/Not Resolved]
  - Musculoskeletal stiffness [Not Recovered/Not Resolved]
  - Liver function test abnormal [Not Recovered/Not Resolved]
